FAERS Safety Report 12545457 (Version 4)
Quarter: 2020Q3

REPORT INFORMATION
  Report Type: Report from Study
  Country: GR (occurrence: GR)
  Receive Date: 20160711
  Receipt Date: 20180529
  Transmission Date: 20201104
  Serious: Yes (Death, Life-Threatening)
  Sender: FDA-Public Use
  Company Number: GR-JNJFOC-20160706004

PATIENT
  Age: 88 Year
  Sex: Female

DRUGS (4)
  1. ASPIRIN. [Concomitant]
     Active Substance: ASPIRIN
     Route: 048
     Dates: start: 20160404, end: 20160427
  2. RIVAROXABAN [Suspect]
     Active Substance: RIVAROXABAN
     Route: 048
  3. RIVAROXABAN [Suspect]
     Active Substance: RIVAROXABAN
     Indication: THROMBOSIS PROPHYLAXIS
     Dosage: TIME OF FIRST DOSE: AT 14:30
     Route: 048
     Dates: start: 20160411, end: 20160427
  4. ATORVASTATIN [Concomitant]
     Active Substance: ATORVASTATIN
     Indication: DYSLIPIDAEMIA
     Route: 048
     Dates: start: 20160405, end: 20160427

REACTIONS (1)
  - Death [Fatal]

NARRATIVE: CASE EVENT DATE: 20160428
